FAERS Safety Report 15403037 (Version 1)
Quarter: 2018Q3

REPORT INFORMATION
  Report Type: Report from Study
  Country: US (occurrence: US)
  Receive Date: 20180919
  Receipt Date: 20180919
  Transmission Date: 20181010
  Serious: Yes (Other)
  Sender: FDA-Public Use
  Company Number: US-PFIZER INC-2018324153

PATIENT
  Age: 67 Year
  Sex: Female

DRUGS (2)
  1. IBRANCE [Suspect]
     Active Substance: PALBOCICLIB
     Dosage: 100 MG, DAILY
     Route: 048
     Dates: start: 20180906
  2. IBRANCE [Suspect]
     Active Substance: PALBOCICLIB
     Indication: BREAST CANCER
     Dosage: 125 MG, DAILY
     Route: 048
     Dates: start: 20180803, end: 20180824

REACTIONS (25)
  - Insomnia [Unknown]
  - Fatigue [Recovered/Resolved]
  - Hypoaesthesia [Recovered/Resolved]
  - Condition aggravated [Recovered/Resolved]
  - Weight decreased [Recovered/Resolved]
  - Herpes zoster [Unknown]
  - Dry eye [Unknown]
  - Dyspnoea [Unknown]
  - Nausea [Recovered/Resolved]
  - Diarrhoea [Recovered/Resolved]
  - White blood cell count decreased [Recovered/Resolved]
  - Axillary pain [Unknown]
  - Abdominal pain upper [Unknown]
  - Feeding disorder [Unknown]
  - Renal impairment [Recovered/Resolved]
  - Stomatitis [Recovered/Resolved]
  - Rash [Recovered/Resolved]
  - Platelet count decreased [Unknown]
  - Pain [Unknown]
  - Pruritus [Recovered/Resolved]
  - Alopecia [Not Recovered/Not Resolved]
  - Superficial injury of eye [Unknown]
  - Constipation [Unknown]
  - Pharyngeal mass [Unknown]
  - Nasal congestion [Unknown]

NARRATIVE: CASE EVENT DATE: 2018
